FAERS Safety Report 18062414 (Version 1)
Quarter: 2020Q3

REPORT INFORMATION
  Report Type: Spontaneous
  Country: DE (occurrence: DE)
  Receive Date: 20200724
  Receipt Date: 20200724
  Transmission Date: 20201103
  Serious: Yes (Hospitalization, Other)
  Sender: FDA-Public Use
  Company Number: DE-TEVA-2020-DE-1804170

PATIENT
  Sex: Female

DRUGS (10)
  1. BISOPROLOL [Concomitant]
     Active Substance: BISOPROLOL
  2. PREDNISOLON [Concomitant]
     Active Substance: PREDNISOLONE
     Indication: ORGANISING PNEUMONIA
     Dosage: 5 MILLIGRAM DAILY;
     Route: 048
  3. AZATHIOPRINE. [Suspect]
     Active Substance: AZATHIOPRINE
     Indication: IMMUNOSUPPRESSION
     Dosage: 150 MILLIGRAM DAILY;
     Route: 048
     Dates: end: 20200512
  4. AZATHIOPRINE. [Suspect]
     Active Substance: AZATHIOPRINE
     Indication: ORGANISING PNEUMONIA
  5. PREDNISOLON [Concomitant]
     Active Substance: PREDNISOLONE
     Indication: IMMUNOSUPPRESSION
  6. ALLOPURINOL. [Suspect]
     Active Substance: ALLOPURINOL
     Dosage: 200 MILLIGRAM DAILY;
     Route: 048
     Dates: end: 20200512
  7. PANTOPRAZOL [Concomitant]
     Active Substance: PANTOPRAZOLE SODIUM
  8. RAMIPRIL. [Concomitant]
     Active Substance: RAMIPRIL
  9. AMLODIPIN [Concomitant]
     Active Substance: AMLODIPINE BESYLATE
  10. COTRIM [Suspect]
     Active Substance: SULFAMETHOXAZOLE\TRIMETHOPRIM
     Indication: PROPHYLAXIS
     Dosage: 960 MG 2X/W, 1920 MG
     Route: 048
     Dates: end: 20200514

REACTIONS (2)
  - Anaemia [Recovering/Resolving]
  - Pancytopenia [Recovering/Resolving]
